FAERS Safety Report 4643921-7 (Version None)
Quarter: 2005Q2

REPORT INFORMATION
  Report Type: 
  Country: None (occurrence: None)
  Receive Date: 20050418
  Receipt Date: 20050406
  Transmission Date: 20051028
  Serious: Yes (Other)
  Sender: FDA-Public Use
  Company Number: FRWYE565007APR05

PATIENT
  Sex: Male

DRUGS (1)
  1. REFACTO [Suspect]
     Indication: HAEMOPHILIA
     Dosage: INTRAVENOUS
     Route: 042

REACTIONS (1)
  - ANTI FACTOR VIII ANTIBODY POSITIVE [None]
